FAERS Safety Report 23720961 (Version 4)
Quarter: 2024Q2

REPORT INFORMATION
  Report Type: Report from Study
  Country: US (occurrence: US)
  Receive Date: 20240409
  Receipt Date: 20240531
  Transmission Date: 20240716
  Serious: Yes (Other)
  Sender: FDA-Public Use
  Company Number: US-ACADIA PHARMACEUTICALS INC.-ACA-2024-PIM-001548

PATIENT
  Sex: Female

DRUGS (3)
  1. NUPLAZID [Suspect]
     Active Substance: PIMAVANSERIN TARTRATE
     Indication: Parkinson^s disease psychosis
     Dosage: 34 MILLIGRAM, QD
     Route: 048
  2. NUPLAZID [Suspect]
     Active Substance: PIMAVANSERIN TARTRATE
     Dosage: 34 MILLIGRAM, QD
     Route: 048
  3. ONGENTYS [Concomitant]
     Active Substance: OPICAPONE

REACTIONS (6)
  - Clostridium difficile infection [Unknown]
  - Delusion [Unknown]
  - Product dose omission issue [Not Recovered/Not Resolved]
  - Urinary tract infection [Unknown]
  - Fall [Unknown]
  - Hallucination [Unknown]
